FAERS Safety Report 7727236-6 (Version None)
Quarter: 2011Q3

REPORT INFORMATION
  Report Type: 
  Country: None (occurrence: None)
  Receive Date: 20110902
  Receipt Date: 20110829
  Transmission Date: 20111222
  Serious: Yes (Other)
  Sender: FDA-Public Use
  Company Number: US-BAYER-2011-080210

PATIENT
  Sex: Male

DRUGS (14)
  1. PROHANCE [Suspect]
  2. GADOLINIUM IN UNSPECIFIED DRUG [Suspect]
     Dosage: UNK
     Dates: start: 19971003
  3. OMNISCAN [Suspect]
     Indication: IMAGING PROCEDURE
     Dosage: UNK
     Dates: start: 20021204, end: 20021204
  4. GADOLINIUM IN UNSPECIFIED DRUG [Suspect]
     Dosage: UNK
     Dates: start: 19990216
  5. GADOLINIUM IN UNSPECIFIED DRUG [Suspect]
     Dosage: UNK
     Dates: start: 20020825
  6. OMNISCAN [Suspect]
     Dosage: UNK
     Dates: start: 20040916, end: 20040916
  7. MULTIHANCE [Suspect]
  8. MAGNEVIST [Suspect]
  9. OPTIMARK [Suspect]
  10. GADOLINIUM IN UNSPECIFIED DRUG [Suspect]
     Dosage: UNK
     Dates: start: 20020612
  11. OMNISCAN [Suspect]
     Dosage: UNK
     Dates: start: 20021211, end: 20021211
  12. OMNISCAN [Suspect]
     Dosage: UNK
     Dates: start: 20031101, end: 20031101
  13. GADOLINIUM IN UNSPECIFIED DRUG [Suspect]
     Dosage: UNK
     Dates: start: 20021211
  14. GADOLINIUM IN UNSPECIFIED DRUG [Suspect]
     Dosage: UNK
     Dates: start: 20031101

REACTIONS (4)
  - PAIN [None]
  - FIBROSIS [None]
  - NEPHROGENIC SYSTEMIC FIBROSIS [None]
  - EMOTIONAL DISTRESS [None]
